FAERS Safety Report 21741776 (Version 3)
Quarter: 2023Q1

REPORT INFORMATION
  Report Type: Report from Study
  Country: CA (occurrence: CA)
  Receive Date: 20221216
  Receipt Date: 20230316
  Transmission Date: 20230417
  Serious: Yes (Hospitalization, Other)
  Sender: FDA-Public Use
  Company Number: CA-JNJFOC-20220326272

PATIENT
  Age: 75 Year
  Sex: Male

DRUGS (1)
  1. SIMPONI [Suspect]
     Active Substance: GOLIMUMAB
     Indication: Psoriatic arthropathy
     Route: 041

REACTIONS (9)
  - Nerve injury [Unknown]
  - Urostomy [Not Recovered/Not Resolved]
  - Urinary tract infection [Not Recovered/Not Resolved]
  - Fall [Recovering/Resolving]
  - Pain [Unknown]
  - Nerve injury [Unknown]
  - Incision site haemorrhage [Unknown]
  - Procedural pain [Not Recovered/Not Resolved]
  - Medical procedure [Unknown]

NARRATIVE: CASE EVENT DATE: 20220308
